FAERS Safety Report 8530976 (Version 8)
Quarter: 2012Q4

REPORT INFORMATION
  Report Type: 
  Country: US (occurrence: US)
  Receive Date: 20120426
  Receipt Date: 20120904
  Transmission Date: 20130627
  Serious: No
  Sender: FDA-Public Use
  Company Number: US-PFIZER INC-2012099753

PATIENT
  Age: 69 Year
  Sex: Male
  Weight: 120.18 kg

DRUGS (11)
  1. SUTENT [Suspect]
     Indication: METASTATIC RENAL CELL CARCINOMA
     Dosage: 50 mg, 1x/day, (cycle 4 weeks on and 2 weeks off)
     Route: 048
     Dates: start: 20120402, end: 20120429
  2. SUTENT [Suspect]
     Indication: RENAL CANCER
  3. ISOSORBIDE [Concomitant]
     Dosage: UNK
  4. POTASSIUM CHLORIDE [Concomitant]
     Dosage: 10 mEq, UNK
  5. FUROSEMIDE [Concomitant]
     Dosage: 20 mg, UNK
  6. GABAPENTIN [Concomitant]
     Indication: DIABETES MELLITUS
     Dosage: 300 mg, 3x/day
  7. OMEPRAZOLE [Concomitant]
     Dosage: 10 mg, UNK
  8. ALLOPURINOL [Concomitant]
     Indication: GOUT
     Dosage: 100 mg, UNK
  9. ALLOPURINOL [Concomitant]
     Dosage: 200 mg, UNK
  10. PRAVASTATIN [Concomitant]
     Dosage: 40 mg, 1x/day
  11. ACETYLSALICYLIC ACID [Concomitant]
     Dosage: 81 mg, 1x/day

REACTIONS (15)
  - Gout [Not Recovered/Not Resolved]
  - Fatigue [Not Recovered/Not Resolved]
  - Respiratory disorder [Unknown]
  - Rash erythematous [Unknown]
  - Platelet count decreased [Unknown]
  - Excoriation [Unknown]
  - Impaired healing [Unknown]
  - Dysgeusia [Unknown]
  - Oropharyngeal pain [Unknown]
  - Stomatitis [Unknown]
  - Oral pain [Unknown]
  - Arthropod bite [Unknown]
  - Corneal erosion [Recovering/Resolving]
  - Eye injury [Recovered/Resolved]
  - Weight decreased [Unknown]
